FAERS Safety Report 12423401 (Version 1)
Quarter: 2016Q2

REPORT INFORMATION
  Report Type: Spontaneous
  Country: CA (occurrence: None)
  Receive Date: 20160531
  Receipt Date: 20160531
  Transmission Date: 20160815
  Serious: Yes (Life-Threatening, Hospitalization, Disabling, Other)
  Sender: FDA-Public Use
  Company Number: None

PATIENT
  Age: 63 Year
  Sex: Male
  Weight: 86.18 kg

DRUGS (15)
  1. PREGABALIN. [Concomitant]
     Active Substance: PREGABALIN
  2. VITAMIN B12 [Concomitant]
     Active Substance: CYANOCOBALAMIN
  3. INDAPIAMIDE [Concomitant]
  4. VITAMIN E [Concomitant]
     Active Substance: .ALPHA.-TOCOPHEROL
  5. LIPITOR [Concomitant]
     Active Substance: ATORVASTATIN CALCIUM
  6. REMERON [Concomitant]
     Active Substance: MIRTAZAPINE
  7. METHOPRAZINE [Concomitant]
     Active Substance: LEVOMEPROMAZINE MALEATE
  8. COQ10 [Concomitant]
     Active Substance: UBIDECARENONE
  9. APO LEVOFLOXACIN [Suspect]
     Active Substance: LEVOFLOXACIN
     Indication: DYSPNOEA
     Route: 048
     Dates: start: 20160225, end: 20160302
  10. PREDNISONE. [Concomitant]
     Active Substance: PREDNISONE
  11. BYSTOLIC [Concomitant]
     Active Substance: NEBIVOLOL HYDROCHLORIDE
  12. RAMIPRIL. [Concomitant]
     Active Substance: RAMIPRIL
  13. VITAMIN B6 [Concomitant]
     Active Substance: PYRIDOXINE HYDROCHLORIDE
  14. VITAMIN D [Concomitant]
     Active Substance: CHOLECALCIFEROL
  15. VITAMIN C [Concomitant]
     Active Substance: ASCORBIC ACID

REACTIONS (12)
  - Hypotonia [None]
  - Insomnia [None]
  - Depression [None]
  - Neuropathy peripheral [None]
  - Rash [None]
  - Dysgeusia [None]
  - Disturbance in attention [None]
  - Parosmia [None]
  - Burning sensation [None]
  - Activities of daily living impaired [None]
  - Weight decreased [None]
  - Anger [None]

NARRATIVE: CASE EVENT DATE: 20160226
